FAERS Safety Report 10007428 (Version 1)
Quarter: 2014Q1

REPORT INFORMATION
  Report Type: Spontaneous
  Country: RU (occurrence: RU)
  Receive Date: 20140313
  Receipt Date: 20140313
  Transmission Date: 20141002
  Serious: Yes (Other)
  Sender: FDA-Public Use
  Company Number: RU-GLAXOSMITHKLINE-B0976459A

PATIENT
  Age: 77 Year
  Sex: Female

DRUGS (1)
  1. SERETIDE [Suspect]
     Indication: ASTHMA
     Route: 055

REACTIONS (5)
  - Burning sensation [Recovered/Resolved]
  - Rales [Recovered/Resolved]
  - Dyspnoea [Recovered/Resolved]
  - Respiratory disorder [Recovered/Resolved]
  - Condition aggravated [Unknown]
